FAERS Safety Report 19236062 (Version 1)
Quarter: 2021Q2

REPORT INFORMATION
  Report Type: Spontaneous
  Country: CN (occurrence: CN)
  Receive Date: 20210510
  Receipt Date: 20210510
  Transmission Date: 20210717
  Serious: Yes (Hospitalization)
  Sender: FDA-Public Use
  Company Number: CN-009507513-2105CHN000487

PATIENT
  Age: 55 Year
  Sex: Male
  Weight: 89 kg

DRUGS (7)
  1. DICLOFENAC SODIUM. [Suspect]
     Active Substance: DICLOFENAC SODIUM
     Indication: PAIN
     Dosage: 1 TABLET 1 TIME IN A DAY
     Route: 048
     Dates: start: 20210410, end: 20210414
  2. PLAVIX [Suspect]
     Active Substance: CLOPIDOGREL BISULFATE
     Indication: ANTIPLATELET THERAPY
     Dosage: 1 TIME IN 1 DAY
     Route: 048
     Dates: start: 20210323, end: 20210425
  3. TIENAM [Suspect]
     Active Substance: CILASTATIN SODIUM\IMIPENEM
     Indication: INFECTION
     Dosage: 3 TIMES A DAY
     Route: 041
     Dates: start: 20210330, end: 20210408
  4. AVELOX [Suspect]
     Active Substance: MOXIFLOXACIN HYDROCHLORIDE
     Indication: INFECTION
     Dosage: 1 TIME IN 1 DAY
     Route: 041
     Dates: start: 20210329, end: 20210408
  5. DICLOFENAC SODIUM. [Suspect]
     Active Substance: DICLOFENAC SODIUM
     Indication: PYREXIA
  6. PIPERACILLIN AND TAZOBACTAM [Suspect]
     Active Substance: PIPERACILLIN SODIUM\TAZOBACTAM SODIUM
     Indication: INFECTION
     Dosage: 2 TIMES A DAY
     Route: 041
     Dates: start: 20210324, end: 20210329
  7. BAYASPIRIN [Concomitant]
     Active Substance: ASPIRIN
     Indication: ANTIPLATELET THERAPY
     Dosage: 1 TIME IN 1 DAY
     Route: 048
     Dates: start: 20210323, end: 20210425

REACTIONS (2)
  - Pyrexia [Recovering/Resolving]
  - Henoch-Schonlein purpura [Recovering/Resolving]

NARRATIVE: CASE EVENT DATE: 2021
